FAERS Safety Report 15012833 (Version 1)
Quarter: 2018Q2

REPORT INFORMATION
  Report Type: Spontaneous
  Country: GB (occurrence: GB)
  Receive Date: 20180614
  Receipt Date: 20180614
  Transmission Date: 20180711
  Serious: Yes (Other)
  Sender: FDA-Public Use
  Company Number: PHHY2018GB019675

PATIENT

DRUGS (1)
  1. DUOTRAV (ALC) [Suspect]
     Active Substance: TIMOLOL MALEATE\TRAVOPROST
     Indication: PRODUCT USED FOR UNKNOWN INDICATION
     Route: 047

REACTIONS (11)
  - Glaucoma [Unknown]
  - Nasal congestion [Unknown]
  - Insomnia [Unknown]
  - Drooling [Unknown]
  - Wrong technique in product usage process [Unknown]
  - Dry mouth [Unknown]
  - Myalgia [Unknown]
  - Heart rate increased [Unknown]
  - Pharyngeal ulceration [Unknown]
  - Pain in extremity [Unknown]
  - Depression [Unknown]
